FAERS Safety Report 15670929 (Version 1)
Quarter: 2018Q4

REPORT INFORMATION
  Report Type: Spontaneous
  Country: CZ (occurrence: CZ)
  Receive Date: 20181129
  Receipt Date: 20181129
  Transmission Date: 20190205
  Serious: Yes (Life-Threatening, Hospitalization)
  Sender: FDA-Public Use
  Company Number: CZ-TEVA-2018-CZ-979472

PATIENT
  Age: 52 Year
  Sex: Male

DRUGS (1)
  1. PENBENE [Suspect]
     Active Substance: PENICILLIN V
     Route: 065

REACTIONS (1)
  - Drug eruption [Recovered/Resolved]
